FAERS Safety Report 21570906 (Version 11)
Quarter: 2023Q4

REPORT INFORMATION
  Report Type: Spontaneous
  Country: US (occurrence: US)
  Receive Date: 20221109
  Receipt Date: 20231012
  Transmission Date: 20240109
  Serious: Yes (Other)
  Sender: FDA-Public Use
  Company Number: US-GLAXOSMITHKLINE-US2022AMR159835

PATIENT

DRUGS (3)
  1. ZEJULA [Suspect]
     Active Substance: NIRAPARIB
     Indication: Ovarian cancer
     Dosage: 200 MG, QD
     Dates: start: 20221028, end: 20221121
  2. ZEJULA [Suspect]
     Active Substance: NIRAPARIB
     Dosage: 100 MG, QD
     Dates: start: 20221202
  3. ZEJULA [Suspect]
     Active Substance: NIRAPARIB
     Dosage: 100 MG, QD
     Dates: start: 202301, end: 20230824

REACTIONS (17)
  - Diverticulitis [Unknown]
  - Nausea [Not Recovered/Not Resolved]
  - Back pain [Not Recovered/Not Resolved]
  - Hair growth abnormal [Not Recovered/Not Resolved]
  - Headache [Not Recovered/Not Resolved]
  - Platelet count decreased [Recovering/Resolving]
  - Pruritus [Not Recovered/Not Resolved]
  - Piloerection [Not Recovered/Not Resolved]
  - Weight increased [Not Recovered/Not Resolved]
  - Myalgia [Not Recovered/Not Resolved]
  - Fatigue [Not Recovered/Not Resolved]
  - Illness [Recovered/Resolved]
  - Road traffic accident [Recovered/Resolved]
  - Contusion [Recovered/Resolved]
  - Hepatic enzyme increased [Not Recovered/Not Resolved]
  - Feeling abnormal [Unknown]
  - Upper respiratory tract infection [Not Recovered/Not Resolved]

NARRATIVE: CASE EVENT DATE: 20221029
